FAERS Safety Report 8391700-X (Version None)
Quarter: 2012Q2

REPORT INFORMATION
  Report Type: 
  Country: None (occurrence: None)
  Receive Date: 20120529
  Receipt Date: 20120524
  Transmission Date: 20120825
  Serious: Yes (Other)
  Sender: FDA-Public Use
  Company Number: PHHY2012MX045303

PATIENT
  Sex: Female

DRUGS (2)
  1. DIOVAN HCT [Suspect]
     Indication: HYPERTENSION
     Dosage: 1  TABLET (320/25 MG) DAILY
     Dates: start: 20090401
  2. VYTORIN [Concomitant]
     Indication: HYPERTENSION
     Dosage: 1 DF, DAILY

REACTIONS (3)
  - BLOOD TRIGLYCERIDES DECREASED [None]
  - THROMBOSIS [None]
  - BLOOD CHOLESTEROL DECREASED [None]
